FAERS Safety Report 17201317 (Version 1)
Quarter: 2019Q4

REPORT INFORMATION
  Report Type: Spontaneous
  Country: US (occurrence: US)
  Receive Date: 20191226
  Receipt Date: 20191226
  Transmission Date: 20200122
  Serious: No
  Sender: FDA-Public Use
  Company Number: US-009507513-1912USA005142

PATIENT

DRUGS (1)
  1. LOTRISONE [Suspect]
     Active Substance: BETAMETHASONE DIPROPIONATE\CLOTRIMAZOLE
     Dosage: 3 TIMES A DAY, 2-3 DAYS AT A TIME

REACTIONS (3)
  - No adverse event [Unknown]
  - Product dose omission [Unknown]
  - Product availability issue [Unknown]

NARRATIVE: CASE EVENT DATE: 20191208
